FAERS Safety Report 25730207 (Version 1)
Quarter: 2025Q3

REPORT INFORMATION
  Report Type: Other
  Country: CA (occurrence: CA)
  Receive Date: 20250827
  Receipt Date: 20250827
  Transmission Date: 20251021
  Serious: Yes (Other)
  Sender: BIOCON
  Company Number: CA-BIOCON BIOLOGICS LIMITED-BBL2025004691

PATIENT

DRUGS (5)
  1. KIRSTY [Suspect]
     Active Substance: INSULIN ASPART-XJHZ
     Indication: Diabetes mellitus
     Dosage: 21 UNITS, 1 EVERY 1 DAYS (SOLUTION SUBCUTANEOUS)
     Route: 058
  2. KIRSTY [Suspect]
     Active Substance: INSULIN ASPART-XJHZ
     Dosage: 11 UNITS, 1 EVERY 1 DAYS (SOLUTION SUBCUTANEOUS)
     Route: 058
  3. ATORVASTATIN [Concomitant]
     Active Substance: ATORVASTATIN
     Indication: Product used for unknown indication
     Route: 065
  4. ASPIRIN [Concomitant]
     Active Substance: ASPIRIN
     Indication: Product used for unknown indication
     Route: 065
  5. RAMIPRIL [Concomitant]
     Active Substance: RAMIPRIL
     Indication: Product used for unknown indication
     Route: 065

REACTIONS (2)
  - Malaise [Recovered/Resolved]
  - Drug ineffective [Recovered/Resolved]
